FAERS Safety Report 23662401 (Version 1)
Quarter: 2024Q1

REPORT INFORMATION
  Report Type: Spontaneous
  Country: FR (occurrence: FR)
  Receive Date: 20240322
  Receipt Date: 20240322
  Transmission Date: 20240410
  Serious: Yes (Other)
  Sender: FDA-Public Use
  Company Number: None

PATIENT
  Age: 42 Year
  Sex: Female

DRUGS (6)
  1. HYDROXYUREA [Suspect]
     Active Substance: HYDROXYUREA
     Indication: Polycythaemia
     Dosage: 3 CAPSULE/WEEK
     Route: 048
     Dates: start: 202210, end: 20240205
  2. PEGASYS [Suspect]
     Active Substance: PEGINTERFERON ALFA-2A
     Indication: Polycythaemia
     Route: 058
     Dates: start: 202210, end: 202309
  3. PEGASYS [Suspect]
     Active Substance: PEGINTERFERON ALFA-2A
     Indication: Polycythaemia
     Route: 058
     Dates: start: 202309, end: 20240205
  4. ELIQUIS [Concomitant]
     Active Substance: APIXABAN
     Indication: Portal vein thrombosis
     Dosage: 5MG MORNING AND EVENING ?DAILY DOSE: 10 MILLIGRAM
     Route: 048
     Dates: start: 202207
  5. ACETAMINOPHEN\CODEINE PHOSPHATE [Concomitant]
     Active Substance: ACETAMINOPHEN\CODEINE PHOSPHATE
     Indication: Pain
     Dosage: 8 TABLETS
     Dates: start: 202401
  6. L-Tyroconcept (Fenioux laboratory) [Concomitant]
     Indication: Hypothyroidism

REACTIONS (2)
  - Mixed liver injury [Not Recovered/Not Resolved]
  - Pruritus [Not Recovered/Not Resolved]

NARRATIVE: CASE EVENT DATE: 20230516
